FAERS Safety Report 8560391-7 (Version None)
Quarter: 2012Q3

REPORT INFORMATION
  Report Type: 
  Country: None (occurrence: None)
  Receive Date: 20120802
  Receipt Date: 20120720
  Transmission Date: 20120928
  Serious: No
  Sender: FDA-Public Use
  Company Number: US-ASTRAZENECA-2012SE38990

PATIENT
  Age: 73 Year
  Sex: Male
  Weight: 99.3 kg

DRUGS (10)
  1. SYMBICORT [Suspect]
     Dosage: 160/4.5 MCG, 1 PUFF, IN THE MORNING, AS REQUIRED
     Route: 055
  2. ASPIRIN [Concomitant]
  3. GABAPENTIN [Concomitant]
  4. METOPROLOL TARTRATE [Concomitant]
  5. SYMBICORT [Suspect]
     Indication: CHRONIC OBSTRUCTIVE PULMONARY DISEASE
     Dosage: 160/4.5 MCG, TWO PUFFS, TWO TIMES A DAY
     Route: 055
  6. FAMOTIDINE [Concomitant]
  7. SYMBICORT [Suspect]
     Dosage: 1 PUFF, IN THE AM AND 2 IN PM
     Route: 055
  8. HYDROCHLOROTHIAZIDE [Concomitant]
  9. LOVASTATIN [Concomitant]
  10. LISINOPRIL [Concomitant]

REACTIONS (3)
  - DRUG DOSE OMISSION [None]
  - DYSPNOEA [None]
  - INTENTIONAL DRUG MISUSE [None]
